FAERS Safety Report 24613400 (Version 1)
Quarter: 2024Q4

REPORT INFORMATION
  Report Type: Spontaneous
  Country: US (occurrence: None)
  Receive Date: 20241112
  Receipt Date: 20241112
  Transmission Date: 20250115
  Serious: Yes (Other)
  Sender: Public
  Company Number: None

PATIENT
  Age: 73 Year
  Sex: Female
  Weight: 65.7 kg

DRUGS (10)
  1. REPATHA [Suspect]
     Active Substance: EVOLOCUMAB
     Indication: Blood cholesterol increased
     Dosage: OTHER FREQUENCY : EVERY 2 WEEKS;?
     Route: 058
  2. CELLCEPT [Concomitant]
     Active Substance: MYCOPHENOLATE MOFETIL
  3. Bella [Concomitant]
  4. d2 [Concomitant]
  5. SYNTHROID [Concomitant]
     Active Substance: LEVOTHYROXINE SODIUM
  6. BABY ASPIRIN [Concomitant]
  7. CARVEDILOL [Concomitant]
  8. PREDNISONE [Concomitant]
  9. Daily vitamin [Concomitant]
  10. daily b vitamin [Concomitant]

REACTIONS (7)
  - Back pain [None]
  - Urinary tract infection [None]
  - Diarrhoea [None]
  - Abdominal discomfort [None]
  - Functional gastrointestinal disorder [None]
  - Bacterial test [None]
  - Gastrointestinal disorder [None]

NARRATIVE: CASE EVENT DATE: 20240810
